FAERS Safety Report 6631460-3 (Version None)
Quarter: 2010Q1

REPORT INFORMATION
  Report Type: 
  Country: None (occurrence: None)
  Receive Date: 20100312
  Receipt Date: 20100308
  Transmission Date: 20100710
  Serious: Yes (Death)
  Sender: FDA-Public Use
  Company Number: US-RB-026841-09

PATIENT
  Age: 23 Year
  Sex: Female
  Weight: 39.15 kg

DRUGS (2)
  1. SUBOXONE [Suspect]
     Indication: DRUG USE FOR UNKNOWN INDICATION
     Dosage: DOSING INFORMATION UNKNOWN
     Route: 065
  2. POTASSIUM [Suspect]
     Dosage: DOSING INFORMATION UNKNOWN
     Route: 065

REACTIONS (2)
  - ARRHYTHMIA [None]
  - HYPOKALAEMIA [None]
